FAERS Safety Report 18440409 (Version 1)
Quarter: 2020Q4

REPORT INFORMATION
  Report Type: Spontaneous
  Country: US (occurrence: US)
  Receive Date: 20201029
  Receipt Date: 20201029
  Transmission Date: 20210114
  Serious: Yes (Other)
  Sender: FDA-Public Use
  Company Number: None

PATIENT
  Age: 50 Year
  Sex: Female
  Weight: 80.1 kg

DRUGS (8)
  1. CYTOMEL [Concomitant]
     Active Substance: LIOTHYRONINE SODIUM
  2. PRILOSEC [Concomitant]
     Active Substance: OMEPRAZOLE MAGNESIUM
  3. TOMPOMAX [Concomitant]
  4. RESTASIS [Concomitant]
     Active Substance: CYCLOSPORINE
  5. EMGALITY [Suspect]
     Active Substance: GALCANEZUMAB-GNLM
     Indication: MIGRAINE
     Dosage: ?          QUANTITY:1 INJECTION(S);OTHER FREQUENCY:MONTHLY;?
     Route: 058
     Dates: start: 20200613
  6. SYNTHROID [Concomitant]
     Active Substance: LEVOTHYROXINE SODIUM
  7. MAXALT [Concomitant]
     Active Substance: RIZATRIPTAN BENZOATE
  8. AMITRYPTALINE [Concomitant]
     Active Substance: AMITRIPTYLINE

REACTIONS (3)
  - Parosmia [None]
  - Weight increased [None]
  - Taste disorder [None]

NARRATIVE: CASE EVENT DATE: 20200906
